FAERS Safety Report 8291017-8 (Version None)
Quarter: 2012Q2

REPORT INFORMATION
  Report Type: 
  Country: None (occurrence: None)
  Receive Date: 20120417
  Receipt Date: 20111017
  Transmission Date: 20120825
  Serious: No
  Sender: FDA-Public Use
  Company Number: US-ASTRAZENECA-2011SE59801

PATIENT
  Age: 74 Year
  Sex: Female

DRUGS (3)
  1. NEXIUM [Suspect]
     Route: 048
  2. ANTI-INFLAMMATORY [Concomitant]
  3. ASPIRIN [Concomitant]

REACTIONS (3)
  - ARTHRITIS [None]
  - ULCER [None]
  - DRUG DOSE OMISSION [None]
